FAERS Safety Report 15908010 (Version 1)
Quarter: 2019Q1

REPORT INFORMATION
  Report Type: Spontaneous
  Country: US (occurrence: US)
  Receive Date: 20190114
  Receipt Date: 20190114
  Transmission Date: 20190417
  Serious: Yes (Other)
  Sender: FDA-Public Use
  Company Number: None

PATIENT
  Age: 5 Year
  Sex: Male

DRUGS (1)
  1. TACROLIMUS 0.5MG/ML DR. REDDYS [Suspect]
     Active Substance: TACROLIMUS
     Route: 048
     Dates: start: 20171218, end: 20190114

REACTIONS (1)
  - Oral herpes [None]

NARRATIVE: CASE EVENT DATE: 20190112
